FAERS Safety Report 12953165 (Version 1)
Quarter: 2016Q4

REPORT INFORMATION
  Report Type: Spontaneous
  Country: US (occurrence: US)
  Receive Date: 20161117
  Receipt Date: 20161117
  Transmission Date: 20170207
  Serious: Yes (Hospitalization, Other)
  Sender: FDA-Public Use
  Company Number: PHHY2016US155135

PATIENT
  Age: 81 Year
  Sex: Male

DRUGS (1)
  1. AMIODARONE [Suspect]
     Active Substance: AMIODARONE
     Indication: PRODUCT USED FOR UNKNOWN INDICATION
     Route: 065

REACTIONS (4)
  - Failure to thrive [Recovering/Resolving]
  - Leukocytosis [Recovering/Resolving]
  - Toxicity to various agents [Unknown]
  - Hepatotoxicity [Recovering/Resolving]
